FAERS Safety Report 4359846-0 (Version None)
Quarter: 2004Q2

REPORT INFORMATION
  Report Type: 
  Country: None (occurrence: None)
  Receive Date: 20040517
  Receipt Date: 20040428
  Transmission Date: 20050107
  Serious: Yes (Hospitalization)
  Sender: FDA-Public Use
  Company Number: S04-FRA-01800-01

PATIENT
  Age: 79 Year
  Sex: Female

DRUGS (4)
  1. CITALOPRAM HYDROBROMIDE [Suspect]
     Indication: MAJOR DEPRESSION
     Dosage: 56 DROPS QD PO
     Route: 048
     Dates: start: 20040411, end: 20040401
  2. LANSANXIA (PRAZEPAM) [Concomitant]
  3. IMOVANE (ZOPICLONE) [Concomitant]
  4. SYNEDIL (SULPIRIDE) [Concomitant]

REACTIONS (11)
  - BLOOD AMYLASE INCREASED [None]
  - CONJUNCTIVAL HAEMORRHAGE [None]
  - EPISTAXIS [None]
  - HAEMATOMA [None]
  - HAEMORRHAGE [None]
  - LOSS OF CONSCIOUSNESS [None]
  - MUCOUS MEMBRANE DISORDER [None]
  - OSTEORRHAGIA [None]
  - PURPURA [None]
  - SKIN DISORDER [None]
  - TONSILLAR DISORDER [None]
